FAERS Safety Report 5164466-4 (Version None)
Quarter: 2006Q4

REPORT INFORMATION
  Report Type: 
  Country: None (occurrence: None)
  Receive Date: 20061205
  Receipt Date: 20061017
  Transmission Date: 20070319
  Serious: Yes (Other)
  Sender: FDA-Public Use
  Company Number: US-ELI_LILLY_AND_COMPANY-US200610003157

PATIENT
  Age: 56 Year
  Sex: Female
  Weight: 64.399 kg

DRUGS (18)
  1. AVAPRO [Concomitant]
     Indication: CARDIOMYOPATHY
     Dosage: 75 MG, EACH EVENING
  2. PROTONIX [Concomitant]
     Indication: GASTROOESOPHAGEAL REFLUX DISEASE
     Dosage: 40 MG, EACH EVENING
  3. RENAGEL [Concomitant]
     Indication: RENAL FAILURE CHRONIC
     Dosage: 1600 MG, OTHER
  4. RENALTABS [Concomitant]
     Indication: RENAL FAILURE CHRONIC
     Dosage: UNK, EACH EVENING
  5. REQUIP [Concomitant]
     Indication: RESTLESS LEGS SYNDROME
     Dosage: 4 MG, EACH EVENING
  6. LEVOTHYROXINE SODIUM [Concomitant]
     Indication: POST PROCEDURAL HYPOTHYROIDISM
     Dosage: 100 MEQ, DAILY (1/D)
  7. ZINC SULFATE [Concomitant]
     Indication: SUPPLEMENTATION THERAPY
     Dosage: 220 MG, EACH EVENING
  8. ZOCOR [Concomitant]
     Indication: LIPIDS INCREASED
     Dosage: 40 MG, DAILY (1/D)
  9. FLONASE [Concomitant]
     Indication: RHINITIS
  10. ZYPREXA [Suspect]
     Indication: BIPOLAR I DISORDER
     Dosage: 5 MG, DAILY (1/D)
     Dates: start: 20030101
  11. CYMBALTA [Suspect]
     Indication: DEPRESSION
     Dosage: 60 MG, DAILY (1/D)
     Dates: start: 20060919
  12. CYMBALTA [Suspect]
     Dosage: 60 MG, UNK
  13. LITHIUM CARBONATE [Concomitant]
     Indication: BIPOLAR I DISORDER
     Dosage: UNK, UNK
     Dates: end: 20030101
  14. LYRICA [Concomitant]
     Indication: DIABETIC NEUROPATHY
     Dosage: 75 MG, 2/D
  15. COREG [Concomitant]
     Indication: CARDIOMYOPATHY
     Dosage: 6.25 MG, 2/D
  16. METFORMIN [Concomitant]
     Indication: DIABETES MELLITUS
     Dosage: 500 MG, EACH MORNING
  17. NICOTINE [Concomitant]
  18. AMBIEN [Concomitant]
     Indication: INSOMNIA
     Dosage: 10 MG, EACH EVENING
     Dates: start: 20060923

REACTIONS (7)
  - DECUBITUS ULCER [None]
  - DYSKINESIA [None]
  - EUPHORIC MOOD [None]
  - MUSCLE FATIGUE [None]
  - NAUSEA [None]
  - PARAESTHESIA [None]
  - VISION BLURRED [None]
